FAERS Safety Report 8559651-5 (Version None)
Quarter: 2012Q3

REPORT INFORMATION
  Report Type: 
  Country: None (occurrence: None)
  Receive Date: 20120802
  Receipt Date: 20120724
  Transmission Date: 20120928
  Serious: Yes (Hospitalization, Other)
  Sender: FDA-Public Use
  Company Number: US-ABBOTT-12P-163-0960729-00

PATIENT
  Sex: Female
  Weight: 122.58 kg

DRUGS (5)
  1. NORCO [Concomitant]
     Indication: PRODUCT USED FOR UNKNOWN INDICATION
  2. CELEXA [Concomitant]
     Indication: PRODUCT USED FOR UNKNOWN INDICATION
  3. DIFLUCAN [Concomitant]
     Indication: PRODUCT USED FOR UNKNOWN INDICATION
  4. HIBICLENS [Concomitant]
     Indication: PRODUCT USED FOR UNKNOWN INDICATION
  5. HUMIRA [Suspect]
     Indication: HIDRADENITIS
     Route: 058
     Dates: start: 20110401, end: 20120601

REACTIONS (9)
  - HIDRADENITIS [None]
  - PYREXIA [None]
  - SKIN WOUND [None]
  - HEART RATE DECREASED [None]
  - WOUND SECRETION [None]
  - OFF LABEL USE [None]
  - COLITIS ULCERATIVE [None]
  - PAIN [None]
  - WOUND ABSCESS [None]
